FAERS Safety Report 5107698-3 (Version None)
Quarter: 2006Q3

REPORT INFORMATION
  Report Type: 
  Country: None (occurrence: None)
  Receive Date: 20060914
  Receipt Date: 20060901
  Transmission Date: 20061208
  Serious: Yes (Other)
  Sender: FDA-Public Use
  Company Number: 2006-BP-10378RO

PATIENT
  Age: 51 Year
  Sex: Female

DRUGS (9)
  1. METHOTREXATE [Suspect]
     Indication: ACUTE PROMYELOCYTIC LEUKAEMIA
     Dosage: (15 MG), IT
     Route: 037
     Dates: start: 20040919
  2. METHOTREXATE [Suspect]
     Indication: NERVOUS SYSTEM DISORDER
     Dosage: (15 MG), IT
     Route: 037
     Dates: start: 20040919
  3. ARSENIC TRIOXIDE (ARSENIC TRIOXIDE) [Suspect]
     Indication: ACUTE PROMYELOCYTIC LEUKAEMIA
     Dosage: (0.15 ***)
     Dates: start: 20040918, end: 20041012
  4. ARSENIC TRIOXIDE (ARSENIC TRIOXIDE) [Suspect]
     Indication: NERVOUS SYSTEM DISORDER
     Dosage: (0.15 ***)
     Dates: start: 20040918, end: 20041012
  5. CYTARABINE [Suspect]
     Indication: ACUTE PROMYELOCYTIC LEUKAEMIA
     Dosage: (40 MG), IT
     Route: 037
     Dates: start: 20040919
  6. CYTARABINE [Suspect]
     Indication: NERVOUS SYSTEM DISORDER
     Dosage: (40 MG), IT
     Route: 037
     Dates: start: 20040919
  7. PREDNISOLONE [Suspect]
     Indication: ACUTE PROMYELOCYTIC LEUKAEMIA
     Dosage: (20 MG), IT
     Route: 037
     Dates: start: 20040919
  8. PREDNISOLONE [Suspect]
     Indication: NERVOUS SYSTEM DISORDER
     Dosage: (20 MG), IT
     Route: 037
     Dates: start: 20040919
  9. G-CSF (GRANULOCYTE COLONY STIMULATING FACTOR) [Suspect]
     Dates: start: 20041012

REACTIONS (14)
  - C-REACTIVE PROTEIN INCREASED [None]
  - EXTRASYSTOLES [None]
  - FATIGUE [None]
  - HYPOKALAEMIA [None]
  - HYPOMAGNESAEMIA [None]
  - PATHOGEN RESISTANCE [None]
  - PHARYNGITIS [None]
  - PYREXIA [None]
  - SPEECH DISORDER [None]
  - STAPHYLOCOCCAL INFECTION [None]
  - TONIC CONVULSION [None]
  - TORSADE DE POINTES [None]
  - VENTRICULAR EXTRASYSTOLES [None]
  - VENTRICULAR TACHYCARDIA [None]
